FAERS Safety Report 4394306-2 (Version None)
Quarter: 2004Q3

REPORT INFORMATION
  Report Type: 
  Country: None (occurrence: None)
  Receive Date: 20040707
  Receipt Date: 20040623
  Transmission Date: 20050211
  Serious: Yes (Life-Threatening)
  Sender: FDA-Public Use
  Company Number: SUS1-2004-00331

PATIENT
  Age: 40 Year
  Sex: Male
  Weight: 83.9 kg

DRUGS (1)
  1. ADDERALL (AMPHETAMINE ASPARTATE, AMPHETAMINE SULFATE, DEXTROAMPHETAMIN [Suspect]
     Indication: ATTENTION DEFICIT/HYPERACTIVITY DISORDER
     Dosage: 60 MG PER 24 HR,
     Dates: start: 19970101, end: 20001218

REACTIONS (2)
  - ARTERIOSPASM CORONARY [None]
  - MYOCARDIAL INFARCTION [None]
